FAERS Safety Report 6163228-9 (Version None)
Quarter: 2009Q2

REPORT INFORMATION
  Report Type: 
  Country: None (occurrence: None)
  Receive Date: 20090422
  Receipt Date: 20090407
  Transmission Date: 20091009
  Serious: Yes (Hospitalization, Disabling, Other)
  Sender: FDA-Public Use
  Company Number: US-ROCHE-417937

PATIENT
  Sex: Female
  Weight: 54.4 kg

DRUGS (3)
  1. ACCUTANE [Suspect]
     Route: 048
     Dates: start: 20010308, end: 20010523
  2. ACCUTANE [Suspect]
     Route: 048
     Dates: start: 20010523, end: 20010625
  3. ACCUTANE [Suspect]
     Dosage: DOSAGE REPORTED AS 40MG EVERY MORNING (QAM) AND 60 MG EVERY NIGHT (QHS).
     Route: 048
     Dates: start: 20010625, end: 20011001

REACTIONS (16)
  - AFFECT LABILITY [None]
  - AGGRESSION [None]
  - AGITATION [None]
  - ANGER [None]
  - ATTENTION DEFICIT/HYPERACTIVITY DISORDER [None]
  - DELIRIUM [None]
  - DEPRESSION [None]
  - GASTROINTESTINAL DISORDER [None]
  - IMPULSE-CONTROL DISORDER [None]
  - INFLAMMATORY BOWEL DISEASE [None]
  - IRRITABLE BOWEL SYNDROME [None]
  - NEPHROCALCINOSIS [None]
  - PSYCHOTIC DISORDER [None]
  - RECTAL HAEMORRHAGE [None]
  - SUICIDAL IDEATION [None]
  - SUICIDE ATTEMPT [None]
